FAERS Safety Report 5961276-2 (Version None)
Quarter: 2008Q4

REPORT INFORMATION
  Report Type: 
  Country: None (occurrence: None)
  Receive Date: 20081119
  Receipt Date: 20081105
  Transmission Date: 20090506
  Serious: Yes (Disabling)
  Sender: FDA-Public Use
  Company Number: ENTC2008-0371

PATIENT
  Age: 48 Year
  Sex: Female

DRUGS (6)
  1. STALEVO 100 [Suspect]
     Dosage: 50 MG/12.5MG/200MG X3, ORAL
     Route: 048
     Dates: start: 20080201
  2. MODOPAR [Concomitant]
  3. TRIVASTAL [Concomitant]
  4. SOTALEX [Concomitant]
  5. LEVOTHYROX [Concomitant]
  6. ORENCIA [Suspect]
     Indication: RHEUMATOID ARTHRITIS
     Dosage: 1 DF, QMO

REACTIONS (2)
  - DRUG INTERACTION [None]
  - DYSKINESIA [None]
